FAERS Safety Report 23609699 (Version 1)
Quarter: 2024Q1

REPORT INFORMATION
  Report Type: Spontaneous
  Country: US (occurrence: US)
  Receive Date: 20240308
  Receipt Date: 20240308
  Transmission Date: 20240409
  Serious: No
  Sender: FDA-Public Use
  Company Number: US-NEURELIS, INC.-2023NEU000019

PATIENT

DRUGS (2)
  1. VALTOCO [Suspect]
     Active Substance: DIAZEPAM
     Indication: Seizure
     Dosage: ONCE EVERY FEW MONTHS
     Route: 045
     Dates: start: 202101
  2. VIMPAT [Concomitant]
     Active Substance: LACOSAMIDE
     Indication: Product used for unknown indication
     Dosage: UNK
     Route: 065

REACTIONS (5)
  - Migraine [Unknown]
  - Tension headache [Unknown]
  - Sinus headache [Unknown]
  - Nausea [Unknown]
  - Food aversion [Unknown]

NARRATIVE: CASE EVENT DATE: 20230501
